FAERS Safety Report 11421205 (Version 1)
Quarter: 2015Q3

REPORT INFORMATION
  Report Type: Spontaneous
  Country: US (occurrence: US)
  Receive Date: 20150826
  Receipt Date: 20150826
  Transmission Date: 20151125
  Serious: Yes (Other)
  Sender: FDA-Public Use
  Company Number: US-SHIRE-US201510633

PATIENT
  Sex: Female

DRUGS (6)
  1. AMLODIPINE BESILATE [Concomitant]
     Active Substance: AMLODIPINE BESYLATE
     Indication: HYPERTENSION
     Dosage: 5 MG, 1X/DAY:QD
     Route: 048
  2. ALBUTEROL                          /00139501/ [Concomitant]
     Active Substance: ALBUTEROL
     Indication: INHALATION THERAPY
     Dosage: UNK, UNKNOWN
     Route: 055
  3. LISINOPRIL. [Concomitant]
     Active Substance: LISINOPRIL
     Indication: HYPERTENSION
     Dosage: 20 MG, 1X/DAY:QD
     Route: 048
  4. PULMICORT TURBUHALER [Concomitant]
     Active Substance: BUDESONIDE
     Indication: ASTHMA
     Dosage: UNK UNK, UNKNOWN
     Route: 055
  5. LIALDA [Suspect]
     Active Substance: MESALAMINE
     Indication: PRODUCT USED FOR UNKNOWN INDICATION
     Dosage: 4.8 MG(FOUR 1.2 MG TABLETS), 1X/DAY:QD
     Route: 048
     Dates: start: 201504, end: 201505
  6. LIALDA [Suspect]
     Active Substance: MESALAMINE
     Dosage: 4.8 G(FOUR 1.2 MG TABLETS), 1X/DAY:QD
     Route: 048
     Dates: start: 201506

REACTIONS (4)
  - Vomiting [Recovered/Resolved]
  - Haemorrhage [Unknown]
  - Secretion discharge [Unknown]
  - Abdominal pain [Unknown]

NARRATIVE: CASE EVENT DATE: 2015
